FAERS Safety Report 5327056-6 (Version None)
Quarter: 2007Q2

REPORT INFORMATION
  Report Type: 
  Country: None (occurrence: None)
  Receive Date: 20070517
  Receipt Date: 20070509
  Transmission Date: 20071010
  Serious: Yes (Other)
  Sender: FDA-Public Use
  Company Number: PHBS2007JP03367

PATIENT
  Age: 55 Year

DRUGS (13)
  1. TEGRETOL [Suspect]
     Indication: HYPOAESTHESIA
     Dosage: 400 MG, TID
     Route: 048
     Dates: start: 20060517, end: 20070218
  2. TEGRETOL [Suspect]
     Dosage: 600 MG/DAY
     Route: 048
     Dates: start: 20070219, end: 20070314
  3. TEGRETOL [Suspect]
     Dosage: 600 MG/DAY
     Route: 048
  4. BASEN [Concomitant]
     Dosage: 0.6 DF/DAY
     Route: 048
  5. LANDSEN [Concomitant]
     Dosage: 3 DF/DAY
     Route: 048
  6. EUGLUCON [Concomitant]
     Dosage: 5 DF/DAY
     Route: 048
  7. RENIVACE [Concomitant]
     Dosage: 5 DF/DAY
     Route: 048
  8. RETICOLAN [Concomitant]
     Dosage: 1500 DF/DAY
     Route: 048
  9. URSO [Concomitant]
     Dosage: 300 DF/DAY
     Route: 048
  10. JUVELA [Concomitant]
     Dosage: 300 DF/DAY
     Route: 048
  11. MYSLEE [Concomitant]
     Dosage: 10 DF/DAY
     Route: 048
  12. ROHYPNOL [Concomitant]
     Dosage: 1 DF/DAY
     Route: 048
  13. TAKEPRON [Concomitant]
     Dosage: 30 DF/DAY
     Route: 048

REACTIONS (9)
  - COGNITIVE DISORDER [None]
  - DIZZINESS POSTURAL [None]
  - DRUG LEVEL INCREASED [None]
  - FALL [None]
  - GAIT DISTURBANCE [None]
  - HYPOREFLEXIA [None]
  - INCOHERENT [None]
  - MUSCULAR WEAKNESS [None]
  - TRANSIENT ISCHAEMIC ATTACK [None]
